FAERS Safety Report 8968280 (Version 2)
Quarter: 2013Q1

REPORT INFORMATION
  Report Type: Spontaneous
  Country: US (occurrence: US)
  Receive Date: 20121217
  Receipt Date: 20130221
  Transmission Date: 20140127
  Serious: No
  Sender: FDA-Public Use
  Company Number: US-TEVA-375978USA

PATIENT
  Sex: Female

DRUGS (1)
  1. COPAXONE [Suspect]
     Indication: MULTIPLE SCLEROSIS
     Dosage: 5 YEARS

REACTIONS (6)
  - Injection site pain [Unknown]
  - Skin discolouration [Unknown]
  - Injection site pain [Unknown]
  - Urticaria [Recovered/Resolved]
  - Feeling hot [Unknown]
  - Pyrexia [Unknown]
